FAERS Safety Report 6337331-4 (Version None)
Quarter: 2009Q3

REPORT INFORMATION
  Report Type: 
  Country: None (occurrence: None)
  Receive Date: 20090828
  Receipt Date: 20090828
  Transmission Date: 20100115
  Serious: No
  Sender: FDA-Public Use
  Company Number: None

PATIENT
  Age: 73 Year
  Sex: Male
  Weight: 68.9467 kg

DRUGS (1)
  1. AGGRENOX [Suspect]
     Indication: TRANSIENT ISCHAEMIC ATTACK
     Dosage: 25/250 MG ONE A DAY PO
     Route: 048
     Dates: start: 20090817, end: 20090826

REACTIONS (1)
  - HEART RATE INCREASED [None]
